FAERS Safety Report 5210425-2 (Version None)
Quarter: 2007Q1

REPORT INFORMATION
  Report Type: 
  Country: None (occurrence: None)
  Receive Date: 20070117
  Receipt Date: 20060213
  Transmission Date: 20070707
  Serious: Yes (Death, Life-Threatening, Hospitalization)
  Sender: FDA-Public Use
  Company Number: 2005PK02522

PATIENT
  Age: 25091 Day
  Sex: Female
  Weight: 74 kg

DRUGS (3)
  1. ARIMIDEX [Suspect]
     Indication: BREAST CANCER METASTATIC
     Route: 048
     Dates: start: 20050701
  2. AREDIA [Concomitant]
     Indication: BREAST CANCER METASTATIC
     Route: 042
     Dates: start: 20050501
  3. INFLUENZA VACCINE [Concomitant]
     Route: 030
     Dates: start: 20050901, end: 20050901

REACTIONS (2)
  - ACUTE HEPATIC FAILURE [None]
  - HEPATITIS TOXIC [None]
